FAERS Safety Report 9687742 (Version 1)
Quarter: 2013Q4

REPORT INFORMATION
  Report Type: Spontaneous
  Country: US (occurrence: None)
  Receive Date: 20131113
  Receipt Date: 20131113
  Transmission Date: 20140711
  Serious: Yes (Hospitalization)
  Sender: FDA-Public Use
  Company Number: None

PATIENT
  Age: 90 Year
  Sex: Female
  Weight: 47.6 kg

DRUGS (7)
  1. XARELTO [Suspect]
     Indication: ANTICOAGULANT THERAPY
     Dosage: 1 TABLET, QD, ORAL
     Route: 048
  2. SOTALOL 80 MG [Concomitant]
  3. JANUVIA 50 MG [Concomitant]
  4. LOSARTAN 100 MG [Concomitant]
  5. CARDIZEM CD 240 MG [Concomitant]
  6. VENTOLIN AREOSOL INHALER [Concomitant]
  7. SENNA [Concomitant]

REACTIONS (3)
  - Asthenia [None]
  - Gastrointestinal haemorrhage [None]
  - Haemoglobin decreased [None]
